FAERS Safety Report 7805907-0 (Version None)
Quarter: 2011Q4

REPORT INFORMATION
  Report Type: 
  Country: None (occurrence: None)
  Receive Date: 20111011
  Receipt Date: 20110927
  Transmission Date: 20120403
  Serious: No
  Sender: FDA-Public Use
  Company Number: US-BIOGENIDEC-2011BI031497

PATIENT
  Age: 49 Year
  Sex: Female

DRUGS (5)
  1. AVONEX [Suspect]
     Indication: MULTIPLE SCLEROSIS
     Route: 030
     Dates: start: 20080908
  2. ALLERGY MEDICATION (NOS) [Concomitant]
     Indication: PREMEDICATION
  3. VENTOLIN [Concomitant]
     Indication: CHRONIC OBSTRUCTIVE PULMONARY DISEASE
  4. AVONEX [Suspect]
     Route: 030
     Dates: start: 20080908
  5. NAPROSYN [Concomitant]
     Indication: PREMEDICATION

REACTIONS (3)
  - TREMOR [None]
  - SENSORY DISTURBANCE [None]
  - INFLUENZA LIKE ILLNESS [None]
